FAERS Safety Report 8969197 (Version 1)
Quarter: 2012Q4

REPORT INFORMATION
  Report Type: 
  Country: US (occurrence: US)
  Receive Date: 20121218
  Receipt Date: 20121218
  Transmission Date: 20130627
  Serious: No
  Sender: FDA-Public Use
  Company Number: US-BRISTOL-MYERS SQUIBB COMPANY-16308967

PATIENT
  Sex: Male

DRUGS (7)
  1. ABILIFY [Suspect]
  2. CELEXA [Concomitant]
  3. NORVASC [Concomitant]
  4. LOPRESSOR [Concomitant]
  5. ALLOPURINOL [Concomitant]
  6. PLAVIX [Concomitant]
  7. BABY ASPIRIN [Concomitant]

REACTIONS (3)
  - Headache [Unknown]
  - Dizziness [Unknown]
  - Feeling abnormal [Unknown]
